FAERS Safety Report 23797444 (Version 1)
Quarter: 2024Q2

REPORT INFORMATION
  Report Type: Spontaneous
  Country: US (occurrence: US)
  Receive Date: 20240430
  Receipt Date: 20240430
  Transmission Date: 20240716
  Serious: Yes (Hospitalization, Other)
  Sender: FDA-Public Use
  Company Number: US-TEVA-VS-3189152

PATIENT
  Age: 36 Year
  Sex: Female

DRUGS (3)
  1. AJOVY [Suspect]
     Active Substance: FREMANEZUMAB-VFRM
     Indication: Migraine
     Dosage: 225/1.5 MG/ML
     Route: 065
     Dates: start: 202403
  2. AJOVY [Suspect]
     Active Substance: FREMANEZUMAB-VFRM
  3. ELETRIPTAN [Concomitant]
     Active Substance: ELETRIPTAN
     Indication: Migraine
     Route: 048

REACTIONS (6)
  - Idiopathic intracranial hypertension [Recovering/Resolving]
  - Product dose omission issue [Unknown]
  - Post lumbar puncture syndrome [Recovering/Resolving]
  - Sitting disability [Recovering/Resolving]
  - Product storage error [Unknown]
  - Inappropriate schedule of product administration [Unknown]

NARRATIVE: CASE EVENT DATE: 20240101
